FAERS Safety Report 19364709 (Version 15)
Quarter: 2022Q3

REPORT INFORMATION
  Report Type: Report from Study
  Country: US (occurrence: US)
  Receive Date: 20210603
  Receipt Date: 20220718
  Transmission Date: 20221026
  Serious: No
  Sender: FDA-Public Use
  Company Number: US-GLAXOSMITHKLINE-US2021AMR028967

PATIENT

DRUGS (2)
  1. BELANTAMAB MAFODOTIN [Suspect]
     Active Substance: BELANTAMAB MAFODOTIN
     Indication: Product used for unknown indication
     Dosage: 158 MG, Z, EVERY 21 DAYS
     Dates: start: 20201231
  2. BELANTAMAB MAFODOTIN [Suspect]
     Active Substance: BELANTAMAB MAFODOTIN
     Dosage: 142 MG, Z, EVERY 21 DAYS

REACTIONS (8)
  - Keratopathy [Unknown]
  - Visual acuity reduced [Recovered/Resolved]
  - Corneal disorder [Not Recovered/Not Resolved]
  - Night blindness [Recovered/Resolved]
  - Photophobia [Recovered/Resolved]
  - Diplopia [Not Recovered/Not Resolved]
  - Dry eye [Not Recovered/Not Resolved]
  - Foreign body sensation in eyes [Not Recovered/Not Resolved]

NARRATIVE: CASE EVENT DATE: 20210519
